FAERS Safety Report 5694316-9 (Version None)
Quarter: 2008Q2

REPORT INFORMATION
  Report Type: 
  Country: None (occurrence: None)
  Receive Date: 20080404
  Receipt Date: 20080324
  Transmission Date: 20081010
  Serious: Yes (Congenital Anomaly, Other)
  Sender: FDA-Public Use
  Company Number: FR-JNJFOC-20080305593

PATIENT
  Sex: Male
  Weight: 2.67 kg

DRUGS (2)
  1. OFLOCET [Suspect]
     Indication: DRUG EXPOSURE DURING PREGNANCY
     Route: 015
  2. VARNOLINE [Suspect]
     Indication: DRUG EXPOSURE DURING PREGNANCY
     Route: 015

REACTIONS (1)
  - HYPOSPADIAS [None]
